FAERS Safety Report 22040789 (Version 1)
Quarter: 2023Q1

REPORT INFORMATION
  Report Type: Spontaneous
  Country: US (occurrence: US)
  Receive Date: 20230227
  Receipt Date: 20230227
  Transmission Date: 20230417
  Serious: Yes (Hospitalization, Other)
  Sender: FDA-Public Use
  Company Number: US-002147023-NVSC2023US040527

PATIENT
  Sex: Female

DRUGS (1)
  1. LORAZEPAM [Suspect]
     Active Substance: LORAZEPAM
     Indication: Catatonia
     Dosage: 1 MG, TID (OVER A 24-HOUR PERIOD)
     Route: 065

REACTIONS (5)
  - Cardio-respiratory distress [Unknown]
  - Hypotension [Unknown]
  - Bradycardia [Unknown]
  - Somnolence [Unknown]
  - Product use in unapproved indication [Unknown]
